FAERS Safety Report 4652607-4 (Version None)
Quarter: 2005Q2

REPORT INFORMATION
  Report Type: 
  Country: None (occurrence: None)
  Receive Date: 20050502
  Receipt Date: 20050420
  Transmission Date: 20051028
  Serious: No
  Sender: FDA-Public Use
  Company Number: A-CH2004-05484

PATIENT
  Age: 76 Year
  Sex: Female
  Weight: 51 kg

DRUGS (8)
  1. TRACLEER [Suspect]
     Indication: PULMONARY HYPERTENSION
     Dosage: 62.5 MG, BID, ORAL
     Route: 048
     Dates: start: 20040220, end: 20040318
  2. TRACLEER [Suspect]
     Indication: PULMONARY HYPERTENSION
     Dosage: 62.5 MG, BID, ORAL
     Route: 048
     Dates: start: 20041105
  3. DIURETICS [Concomitant]
  4. FLUINDIONE (FLUINDIONE) [Concomitant]
  5. OXYGEN (OXYGEN) [Concomitant]
  6. FLECAINIDE ACETATE [Concomitant]
  7. ISOSORBIDE MONONITRATE [Concomitant]
  8. WARFARIN SODIUM [Concomitant]

REACTIONS (1)
  - CARDIOPULMONARY FAILURE [None]
